FAERS Safety Report 6395773-5 (Version None)
Quarter: 2009Q4

REPORT INFORMATION
  Report Type: 
  Country: None (occurrence: None)
  Receive Date: 20091006
  Receipt Date: 20090921
  Transmission Date: 20100525
  Serious: Yes (Other)
  Sender: FDA-Public Use
  Company Number: AUR-APL-2009-00787

PATIENT
  Age: 77 Year
  Sex: Male
  Weight: 78.9 kg

DRUGS (3)
  1. SIMVASTATIN [Suspect]
     Indication: BLOOD CHOLESTEROL INCREASED
  2. CADUET [Suspect]
     Indication: HYPERTENSION
     Dosage: 1 TABLET DAILY
     Dates: start: 20050101
  3. AMLODIPINE [Suspect]
     Dosage: 10MG

REACTIONS (3)
  - BLOOD PRESSURE INCREASED [None]
  - DEPRESSION [None]
  - INTRAOCULAR PRESSURE INCREASED [None]
